FAERS Safety Report 10375748 (Version 1)
Quarter: 2014Q1

REPORT INFORMATION
  Report Type: Spontaneous
  Country: US (occurrence: None)
  Receive Date: 20140306
  Receipt Date: 20140306
  Transmission Date: 20141002
  Serious: Yes (Hospitalization)
  Sender: FDA-Public Use
  Company Number: 163-21880-13041765

PATIENT
  Age: 84 Year
  Sex: Male

DRUGS (11)
  1. REVLIMID (LENALIDOMIDE) (10 MILLIGRAMS, CAPSULES) [Suspect]
     Indication: PLASMA CELL MYELOMA
     Dosage: 10MG, 21 IN 28D, PO
     Route: 048
     Dates: start: 20100503
  2. ZOMETA (ZOLEDRONIC ACID) [Concomitant]
  3. NITROGLYCERINE (GLYCERYL TRINITRATE) [Concomitant]
  4. MS CONTIN (MORPHINE SULFATE) (15 MILLIGRAM, TABLETS) [Concomitant]
  5. NORCO (VICODIN) [Concomitant]
  6. POTASSIUM CHLORIDE (POTASSIUM CHLORIDE) [Concomitant]
  7. PLAVIX (CLOPIDOGREL SULFATE) (75 MILLIGRAM) [Concomitant]
  8. ZOCOR (SIMVASTATIN) [Concomitant]
  9. METOPROLOL TARTRATE (METOPROLOL TARTRATE) [Concomitant]
  10. MIRALAX (MACROBGOL) [Concomitant]
  11. XANAX (ALPRAZOLAM) [Concomitant]

REACTIONS (1)
  - Pancytopenia [None]
